FAERS Safety Report 8416075-9 (Version None)
Quarter: 2012Q2

REPORT INFORMATION
  Report Type: 
  Country: None (occurrence: None)
  Receive Date: 20120606
  Receipt Date: 20120523
  Transmission Date: 20120825
  Serious: No
  Sender: FDA-Public Use
  Company Number: US-ASTRAZENECA-2012SE33283

PATIENT
  Age: 47 Year
  Sex: Female
  Weight: 6.8 kg

DRUGS (15)
  1. SOMA [Concomitant]
     Indication: MUSCLE SPASMS
  2. KLONOPIN [Concomitant]
     Dosage: THREE TIMES A DAY
  3. ATENOLOL [Concomitant]
     Indication: PALPITATIONS
  4. FOLIC ACID [Concomitant]
     Indication: ANAEMIA
  5. FENTANYL-100 [Concomitant]
     Indication: BREAKTHROUGH PAIN
     Route: 065
  6. LEXAPRO [Concomitant]
  7. DONNATAL [Concomitant]
     Indication: DIARRHOEA
     Dosage: AS REQUIRED
  8. DEPO-PROVERA [Concomitant]
     Indication: ENDOMETRIOSIS
     Dates: start: 19960101
  9. VITAMIN 50000 [Concomitant]
     Dosage: ONCE A WEEK
  10. SYNTHROID [Concomitant]
     Indication: AUTOIMMUNE THYROIDITIS
  11. PRILOSEC [Suspect]
     Route: 048
  12. PRAVACHOL [Concomitant]
     Indication: BLOOD CHOLESTEROL ABNORMAL
  13. AMITIZA [Concomitant]
     Indication: GASTROINTESTINAL DISORDER
  14. PRILOSEC [Suspect]
     Indication: GASTROOESOPHAGEAL REFLUX DISEASE
     Dosage: GENERIC
     Route: 048
     Dates: start: 20120301
  15. NEXIUM [Suspect]
     Route: 048

REACTIONS (13)
  - CHEST PAIN [None]
  - MYALGIA [None]
  - MUSCLE SPASMS [None]
  - SYSTEMIC LUPUS ERYTHEMATOSUS [None]
  - NAUSEA [None]
  - GASTROOESOPHAGEAL REFLUX DISEASE [None]
  - CLUSTER HEADACHE [None]
  - MIGRAINE [None]
  - PAIN [None]
  - FIBROMYALGIA [None]
  - ULCER [None]
  - DRUG INEFFECTIVE [None]
  - OSTEOPOROSIS [None]
